FAERS Safety Report 9697242 (Version 4)
Quarter: 2013Q4

REPORT INFORMATION
  Report Type: Report from Study
  Country: CN (occurrence: CN)
  Receive Date: 20131120
  Receipt Date: 20131209
  Transmission Date: 20140711
  Serious: Yes (Hospitalization, Other)
  Sender: FDA-Public Use
  Company Number: CN-ROCHE-1253635

PATIENT
  Age: 50 Year
  Sex: Male
  Weight: 52.5 kg

DRUGS (4)
  1. CELLCEPT [Suspect]
     Indication: RENAL TRANSPLANT
     Route: 048
     Dates: start: 2001
  2. PREDNISONE ACETATE [Suspect]
     Indication: RENAL TRANSPLANT
     Route: 048
     Dates: start: 19941001
  3. CICLOSPORIN [Concomitant]
     Indication: RENAL TRANSPLANT
     Route: 048
     Dates: start: 19941001
  4. MEDROL [Concomitant]
     Indication: RENAL TRANSPLANT
     Route: 048
     Dates: start: 19941001, end: 201308

REACTIONS (11)
  - Hepatitis C [Not Recovered/Not Resolved]
  - Diabetes mellitus [Not Recovered/Not Resolved]
  - Hepatic steatosis [Not Recovered/Not Resolved]
  - Protein urine present [Recovered/Resolved]
  - Hypertension [Not Recovered/Not Resolved]
  - Pneumonia viral [Not Recovered/Not Resolved]
  - Pain in extremity [Recovered/Resolved]
  - Joint swelling [Recovered/Resolved]
  - Pollakiuria [Not Recovered/Not Resolved]
  - Abdominal pain upper [Not Recovered/Not Resolved]
  - Memory impairment [Not Recovered/Not Resolved]
